FAERS Safety Report 6415729-3 (Version None)
Quarter: 2009Q4

REPORT INFORMATION
  Report Type: 
  Country: None (occurrence: None)
  Receive Date: 20091027
  Receipt Date: 20091015
  Transmission Date: 20100525
  Serious: Yes (Other)
  Sender: FDA-Public Use
  Company Number: US-PFIZER INC-2009286354

PATIENT
  Sex: Female
  Weight: 90.703 kg

DRUGS (6)
  1. XANAX [Suspect]
     Indication: BIPOLAR DISORDER
     Route: 048
     Dates: start: 19980101, end: 20090401
  2. XANAX [Suspect]
     Indication: PANIC DISORDER
  3. LITHIUM CARBONATE [Suspect]
  4. ZYPREXA [Suspect]
  5. DEPAKOTE [Suspect]
  6. HALDOL [Suspect]

REACTIONS (5)
  - DRUG LEVEL INCREASED [None]
  - DYSPNOEA [None]
  - FEELING ABNORMAL [None]
  - HAEMORRHAGE [None]
  - WEIGHT INCREASED [None]
